FAERS Safety Report 25356865 (Version 2)
Quarter: 2025Q2

REPORT INFORMATION
  Report Type: Report from Study
  Country: US (occurrence: US)
  Receive Date: 20250526
  Receipt Date: 20250528
  Transmission Date: 20250717
  Serious: Yes (Other)
  Sender: ROCHE
  Company Number: US-ROCHE-10000254909

PATIENT
  Age: 75 Year
  Sex: Female
  Weight: 74.3 kg

DRUGS (19)
  1. RITUXAN HYCELA [Suspect]
     Active Substance: HYALURONIDASE (HUMAN RECOMBINANT)\RITUXIMAB
     Indication: Lung neoplasm malignant
     Route: 042
     Dates: start: 20250409
  2. RITUXAN HYCELA [Suspect]
     Active Substance: HYALURONIDASE (HUMAN RECOMBINANT)\RITUXIMAB
     Route: 065
     Dates: start: 20250319
  3. RITUXAN HYCELA [Suspect]
     Active Substance: HYALURONIDASE (HUMAN RECOMBINANT)\RITUXIMAB
     Route: 058
     Dates: start: 20250501
  4. POLIVY [Suspect]
     Active Substance: POLATUZUMAB VEDOTIN-PIIQ
     Indication: Lung neoplasm malignant
     Route: 042
  5. METFORMIN [Concomitant]
     Active Substance: METFORMIN HYDROCHLORIDE
  6. OMEPRAZOLE [Concomitant]
     Active Substance: OMEPRAZOLE
  7. OLANZAPINE [Concomitant]
     Active Substance: OLANZAPINE
  8. POLYSACC IRON COMPLEX [Concomitant]
     Active Substance: FERRIC POLYSACCHARIDE COMPLEX
  9. KEPPRA [Concomitant]
     Active Substance: LEVETIRACETAM
  10. PRILOSEC [Concomitant]
     Active Substance: OMEPRAZOLE MAGNESIUM
  11. TRIMETHOPRIM [Concomitant]
     Active Substance: TRIMETHOPRIM
  12. VITAMIN B12 [Concomitant]
     Active Substance: CYANOCOBALAMIN
  13. MIRALAX [Concomitant]
     Active Substance: POLYETHYLENE GLYCOL 3350
  14. ACYCLOVIR [Concomitant]
     Active Substance: ACYCLOVIR
  15. ENOXAPARIN [Concomitant]
     Active Substance: ENOXAPARIN
  16. ALLOPURINOL [Concomitant]
     Active Substance: ALLOPURINOL
  17. ATORVASTATIN [Concomitant]
     Active Substance: ATORVASTATIN
  18. FOLIC ACID [Concomitant]
     Active Substance: FOLIC ACID
  19. PREDNISONE [Concomitant]
     Active Substance: PREDNISONE

REACTIONS (12)
  - Cardiomegaly [Unknown]
  - Mitral valve calcification [Unknown]
  - Subclavian vein thrombosis [Unknown]
  - White blood cell count increased [Unknown]
  - Red blood cell count decreased [Unknown]
  - Haemoglobin decreased [Unknown]
  - Haematocrit decreased [Unknown]
  - Mean cell haemoglobin concentration decreased [Unknown]
  - Red cell distribution width increased [Unknown]
  - Blood alkaline phosphatase abnormal [Unknown]
  - Aortic valve calcification [Unknown]
  - Off label use [Unknown]

NARRATIVE: CASE EVENT DATE: 20250328
